FAERS Safety Report 5903509-4 (Version None)
Quarter: 2008Q3

REPORT INFORMATION
  Report Type: 
  Country: None (occurrence: None)
  Receive Date: 20080930
  Receipt Date: 20080923
  Transmission Date: 20090109
  Serious: Yes (Hospitalization)
  Sender: FDA-Public Use
  Company Number: PHHO2008IT10716

PATIENT
  Sex: Male
  Weight: 60 kg

DRUGS (3)
  1. DESFERAL T21423+ [Suspect]
     Dosage: 30 MG/ KG
     Route: 048
     Dates: start: 20031023
  2. KETOPROFEN [Concomitant]
     Indication: BONE PAIN
     Dosage: UNK
     Dates: start: 20080822, end: 20080822
  3. ACETYLSALICYLIC ACID SRT [Concomitant]
     Dosage: UNK
     Dates: start: 19990101

REACTIONS (4)
  - ABDOMINAL PAIN UPPER [None]
  - GASTRITIS HAEMORRHAGIC [None]
  - MELAENA [None]
  - NAUSEA [None]
